FAERS Safety Report 6847931-0 (Version None)
Quarter: 2010Q3

REPORT INFORMATION
  Report Type: 
  Country: None (occurrence: None)
  Receive Date: 20100716
  Receipt Date: 20100705
  Transmission Date: 20110219
  Serious: Yes (Death, Hospitalization, Other)
  Sender: FDA-Public Use
  Company Number: JP-PFIZER INC-2010075058

PATIENT
  Age: 59 Year
  Sex: Female
  Weight: 46 kg

DRUGS (12)
  1. SILDENAFIL CITRATE [Suspect]
     Indication: PULMONARY HYPERTENSION
     Dosage: 20 MG, 1X/DAY
     Route: 048
     Dates: start: 20080520, end: 20080602
  2. SILDENAFIL CITRATE [Suspect]
     Dosage: 20 MG, 3X/DAY
     Route: 048
     Dates: start: 20080603, end: 20091222
  3. TRACLEER [Concomitant]
     Indication: PULMONARY HYPERTENSION
     Dosage: 125 MG, 2X/DAY
     Route: 048
     Dates: start: 20071027
  4. BLOPRESS [Concomitant]
     Dosage: UNK
     Dates: start: 20071016
  5. BLOPRESS [Concomitant]
     Dosage: UNK
     Dates: end: 20090713
  6. DIART [Concomitant]
     Dosage: 60 MG, 1X/DAY
     Route: 048
     Dates: start: 20071016
  7. ALLOPURINOL [Concomitant]
     Dosage: 100 MG, 1X/DAY
     Dates: start: 20071103
  8. SELBEX [Concomitant]
     Dosage: 50 MG, 2X/DAY
     Route: 048
     Dates: start: 20071005
  9. GLYCYRON [Concomitant]
     Dosage: UNK
     Dates: start: 20080308, end: 20090803
  10. THYRADIN [Concomitant]
     Dosage: 50 MG, 2X/DAY
     Route: 048
     Dates: start: 20070919
  11. EPLERENONE [Concomitant]
     Dosage: 50 MG, 1X/DAY
     Route: 048
     Dates: start: 20090226
  12. BERAPROST SODIUM [Concomitant]
     Dosage: 120 MG, 3X/DAY
     Route: 048
     Dates: start: 20090714

REACTIONS (2)
  - ANAEMIA [None]
  - PULMONARY HYPERTENSION [None]
